FAERS Safety Report 13333437 (Version 1)
Quarter: 2017Q1

REPORT INFORMATION
  Report Type: Report from Study
  Country: KR (occurrence: KR)
  Receive Date: 20170313
  Receipt Date: 20170313
  Transmission Date: 20170428
  Serious: Yes (Hospitalization)
  Sender: FDA-Public Use
  Company Number: KR-DSJP-DSJ-2017-107273

PATIENT

DRUGS (20)
  1. TORSEMIDE. [Concomitant]
     Active Substance: TORSEMIDE
     Indication: HYPERTENSION
     Dosage: 2.5 MG, QD
     Route: 048
     Dates: start: 20160509
  2. ASPIRIN PROTECT [Concomitant]
     Active Substance: ASPIRIN
     Indication: ANGINA UNSTABLE
     Dosage: 100 MG, QD
     Route: 048
     Dates: start: 20160414
  3. ESOMEZOL                           /01479304/ [Concomitant]
     Active Substance: ESOMEPRAZOLE STRONTIUM
     Indication: GASTRIC ULCER
     Dosage: 20 MG, QD
     Route: 048
     Dates: start: 20160414, end: 20161026
  4. SIGMART [Concomitant]
     Active Substance: NICORANDIL
     Indication: ANGINA UNSTABLE
     Dosage: 5 MG, BID
     Route: 048
     Dates: start: 20160414, end: 20160608
  5. BUSPAR [Concomitant]
     Active Substance: BUSPIRONE HYDROCHLORIDE
     Indication: ANXIETY DISORDER
     Dosage: 10 MG, BID
     Route: 048
     Dates: start: 20160414, end: 20160731
  6. OLMESARTAN AMLODIPINE HYDROCHLOROTHIAZIDE [Suspect]
     Active Substance: AMLODIPINE\HYDROCHLOROTHIAZIDE\OLMESARTAN
     Indication: HYPERTENSION
     Dosage: 20/5/12.5 MG, QD
     Route: 048
     Dates: start: 20160414, end: 20160608
  7. ATOZET [Concomitant]
     Active Substance: ATORVASTATIN CALCIUM\EZETIMIBE
     Indication: DYSLIPIDAEMIA
     Dosage: 10/10MG, QD
     Route: 048
     Dates: start: 20160811
  8. OLMESARTAN AMLODIPINE HYDROCHLOROTHIAZIDE [Suspect]
     Active Substance: AMLODIPINE\HYDROCHLOROTHIAZIDE\OLMESARTAN
     Dosage: 20/5/12.5 MG, QD
     Route: 048
     Dates: start: 20160825
  9. ZANAPAM [Concomitant]
     Indication: ANXIETY DISORDER
     Dosage: 0.25 MG, TID
     Route: 048
     Dates: start: 20160801, end: 20160909
  10. TRIZINE                            /00489602/ [Concomitant]
     Indication: ANGINA UNSTABLE
     Dosage: 20 MG, BID
     Route: 048
     Dates: start: 20160414, end: 20160608
  11. OLMESARTAN AND AMLODIPINE [Concomitant]
     Active Substance: AMLODIPINE BESYLATE\OLMESARTAN MEDOXOMIL
     Indication: HYPERTENSION
     Dosage: 20/5 MG, QD
     Route: 048
     Dates: start: 20160414, end: 20160608
  12. ISOTRIL [Concomitant]
     Indication: ANGINA UNSTABLE
     Dosage: 30 MG, QD
     Route: 048
     Dates: start: 20160728, end: 201607
  13. PRAVASTATIN SODIUM. [Concomitant]
     Active Substance: PRAVASTATIN SODIUM
     Indication: DYSLIPIDAEMIA
     Dosage: 10 MG, QD
     Route: 048
     Dates: start: 20160414, end: 20160810
  14. OLMESARTAN AMLODIPINE HYDROCHLOROTHIAZIDE [Suspect]
     Active Substance: AMLODIPINE\HYDROCHLOROTHIAZIDE\OLMESARTAN
     Dosage: 40/10/12.5 MG, QD
     Route: 048
     Dates: start: 20160728, end: 20160824
  15. CARVEDILOL. [Concomitant]
     Active Substance: CARVEDILOL
     Indication: HYPERTENSION
     Dosage: 6.25 MG, BID
     Route: 048
     Dates: start: 20160414, end: 20160713
  16. PRASUGREL HYDROCHLORIDE [Concomitant]
     Active Substance: PRASUGREL HYDROCHLORIDE
     Indication: ANGINA UNSTABLE
     Dosage: 10 MG, QD
     Route: 048
     Dates: start: 20160414, end: 20161110
  17. OLMESARTAN AMLODIPINE HYDROCHLOROTHIAZIDE [Suspect]
     Active Substance: AMLODIPINE\HYDROCHLOROTHIAZIDE\OLMESARTAN
     Dosage: 40/10/25 MG, QD
     Route: 048
     Dates: start: 20160609, end: 20160720
  18. OLMESARTAN AMLODIPINE HYDROCHLOROTHIAZIDE [Suspect]
     Active Substance: AMLODIPINE\HYDROCHLOROTHIAZIDE\OLMESARTAN
     Dosage: 20/5/12.5 MG, QD
     Route: 048
     Dates: start: 20160721, end: 20160727
  19. CARVEDILOL. [Concomitant]
     Active Substance: CARVEDILOL
     Dosage: 12.5 MG, BID
     Route: 048
     Dates: start: 20160714, end: 20160727
  20. CARVEDILOL. [Concomitant]
     Active Substance: CARVEDILOL
     Dosage: 25 MG, BID
     Route: 048
     Dates: start: 20160728

REACTIONS (1)
  - Chest pain [Recovered/Resolved]

NARRATIVE: CASE EVENT DATE: 201608
